FAERS Safety Report 24971177 (Version 1)
Quarter: 2025Q1

REPORT INFORMATION
  Report Type: Report from Study
  Country: US (occurrence: US)
  Receive Date: 20250214
  Receipt Date: 20250214
  Transmission Date: 20250408
  Serious: Yes (Hospitalization)
  Sender: GILEAD
  Company Number: US-GILEAD-2025-0703671

PATIENT
  Age: 86 Year
  Sex: Male

DRUGS (1)
  1. AZTREONAM LYSINE [Suspect]
     Active Substance: AZTREONAM LYSINE
     Indication: Product used for unknown indication
     Dosage: 75 MG, TID ONHALE THE CONTENTS OF 1 VIAL THREE TIMES DAILY VIA NEBULIZER FOR 28 DAYS ON,28 DAYS OFF)
     Route: 055
     Dates: start: 20240927

REACTIONS (1)
  - Illness [Unknown]
